FAERS Safety Report 23707299 (Version 1)
Quarter: 2024Q2

REPORT INFORMATION
  Report Type: Spontaneous
  Country: US (occurrence: None)
  Receive Date: 20240404
  Receipt Date: 20240404
  Transmission Date: 20240716
  Serious: Yes (Death)
  Sender: FDA-Public Use
  Company Number: None

PATIENT
  Age: 76 Year
  Sex: Male
  Weight: 61 kg

DRUGS (2)
  1. CARBOPLATIN [Suspect]
     Active Substance: CARBOPLATIN
     Dates: end: 20201117
  2. TAXOL [Suspect]
     Active Substance: PACLITAXEL
     Dates: end: 20201117

REACTIONS (5)
  - Oesophageal carcinoma [None]
  - Gastrooesophageal cancer recurrent [None]
  - Respiratory failure [None]
  - Therapy cessation [None]
  - Failure to thrive [None]

NARRATIVE: CASE EVENT DATE: 20230601
